FAERS Safety Report 18045724 (Version 10)
Quarter: 2021Q1

REPORT INFORMATION
  Report Type: Report from Study
  Country: ES (occurrence: ES)
  Receive Date: 20200720
  Receipt Date: 20210318
  Transmission Date: 20210419
  Serious: Yes (Death, Hospitalization, Other)
  Sender: FDA-Public Use
  Company Number: ES-EXELIXIS-XL18420031321

PATIENT
  Age: 69 Year
  Sex: Female
  Weight: 71 kg

DRUGS (15)
  1. EUTIROX [Concomitant]
     Active Substance: LEVOTHYROXINE SODIUM
  2. LOSARTAN. [Concomitant]
     Active Substance: LOSARTAN
  3. AUGMENTIN [Concomitant]
     Active Substance: AMOXICILLIN\CLAVULANATE POTASSIUM
  4. MST [Concomitant]
  5. BECLOMETHASONE [Concomitant]
     Active Substance: BECLOMETHASONE
  6. XL184 [Suspect]
     Active Substance: CABOZANTINIB
     Indication: NON-SMALL CELL LUNG CANCER
     Dosage: 60 MG, QD
     Route: 048
     Dates: start: 20200602, end: 20200713
  7. SALBUTAMOL [Concomitant]
     Active Substance: ALBUTEROL
  8. MIRTAZAPINE. [Concomitant]
     Active Substance: MIRTAZAPINE
  9. PARACETAMOL [Concomitant]
     Active Substance: ACETAMINOPHEN
  10. ALPRAZOLAM. [Concomitant]
     Active Substance: ALPRAZOLAM
  11. POLARAMINE [Concomitant]
     Active Substance: DEXCHLORPHENIRAMINE MALEATE
  12. FORMOTEROL [Concomitant]
     Active Substance: FORMOTEROL
  13. VENTOLIN [Concomitant]
     Active Substance: ALBUTEROL SULFATE
  14. LORAZEPAM. [Concomitant]
     Active Substance: LORAZEPAM
  15. ABSTRAL [Concomitant]
     Active Substance: FENTANYL CITRATE

REACTIONS (2)
  - Aspiration [Fatal]
  - Posterior reversible encephalopathy syndrome [Not Recovered/Not Resolved]

NARRATIVE: CASE EVENT DATE: 20200714
